FAERS Safety Report 5588043-6 (Version None)
Quarter: 2008Q1

REPORT INFORMATION
  Report Type: 
  Country: None (occurrence: None)
  Receive Date: 20080111
  Receipt Date: 20071228
  Transmission Date: 20080703
  Serious: Yes (Other)
  Sender: FDA-Public Use
  Company Number: US-PFIZER INC-2007105021

PATIENT
  Sex: Female
  Weight: 77.6 kg

DRUGS (5)
  1. CHANTIX [Suspect]
     Indication: SMOKING CESSATION THERAPY
     Dates: start: 20070801, end: 20071201
  2. XANAX [Suspect]
  3. ATENOLOL [Concomitant]
  4. ESTRATEST [Concomitant]
  5. XANAX [Concomitant]

REACTIONS (13)
  - ABNORMAL DREAMS [None]
  - ACTIVITIES OF DAILY LIVING IMPAIRED [None]
  - ANXIETY [None]
  - DEPRESSION [None]
  - DRUG INEFFECTIVE [None]
  - EATING DISORDER [None]
  - EUPHORIC MOOD [None]
  - ILL-DEFINED DISORDER [None]
  - INSOMNIA [None]
  - ORAL INTAKE REDUCED [None]
  - PARANOIA [None]
  - SUICIDAL BEHAVIOUR [None]
  - TREMOR [None]
